FAERS Safety Report 5218028-0 (Version None)
Quarter: 2007Q1

REPORT INFORMATION
  Report Type: 
  Country: None (occurrence: None)
  Receive Date: 20061130
  Receipt Date: 20060918
  Transmission Date: 20070707
  Serious: Yes (Hospitalization, Other)
  Sender: FDA-Public Use
  Company Number: US200609000299

PATIENT
  Sex: Male
  Weight: 95.2 kg

DRUGS (5)
  1. ZYPREXA (OLANZAPRINE UNKNOWN FORMULATION) UNKNOWN [Suspect]
     Indication: DEPRESSION
     Dosage: 20 MG, UNK UNK
     Dates: start: 20040601
  2. LOPRESSOR [Concomitant]
  3. LITHIUM CARBONATE [Concomitant]
  4. EFFEXOR [Concomitant]
  5. EMTRICITABINE (EMTRICITABINE) [Concomitant]

REACTIONS (6)
  - BLOOD CHOLESTEROL [None]
  - BLOOD TRIGLYCERIDES [None]
  - DIABETES MELLITUS [None]
  - HYPERTENSION [None]
  - METABOLIC DISORDER [None]
  - PANCREATITIS [None]
